FAERS Safety Report 4906955-0 (Version None)
Quarter: 2006Q1

REPORT INFORMATION
  Report Type: 
  Country: None (occurrence: None)
  Receive Date: 20060207
  Receipt Date: 20051102
  Transmission Date: 20060701
  Serious: Yes (Life-Threatening)
  Sender: FDA-Public Use
  Company Number: 107825ISR

PATIENT
  Age: 44 Year
  Sex: Female

DRUGS (5)
  1. FLUOROURACIL [Suspect]
     Indication: COLON CANCER
     Dosage: INTRAVENOUS (NOS)
     Route: 042
     Dates: start: 20050907, end: 20050907
  2. AVASTIN (BEVACIZUMAB) [Suspect]
     Indication: COLON CANCER
     Dosage: INTRAVENOUS (NOS)
     Route: 042
     Dates: start: 20050907, end: 20050907
  3. CALCIUM LEVOFOLINATE [Concomitant]
  4. ONDANSETRON HYDROCHLORIDE [Concomitant]
  5. ELOXATINE (OXALIPLATINE) [Concomitant]

REACTIONS (8)
  - CARDIAC ARREST [None]
  - CORONARY ARTERY DISEASE [None]
  - HYPOKINESIA [None]
  - INTRACARDIAC THROMBUS [None]
  - MASS [None]
  - MYOCARDIAL ISCHAEMIA [None]
  - PULMONARY EMBOLISM [None]
  - SEPTIC SHOCK [None]
